FAERS Safety Report 6218313-X (Version None)
Quarter: 2009Q2

REPORT INFORMATION
  Report Type: 
  Country: None (occurrence: None)
  Receive Date: 20090608
  Receipt Date: 20090602
  Transmission Date: 20091009
  Serious: Yes (Life-Threatening)
  Sender: FDA-Public Use
  Company Number: DE-ASTRAZENECA-2009PK01408

PATIENT
  Age: 49 Year
  Sex: Male
  Weight: 61 kg

DRUGS (2)
  1. PROPOFOL [Suspect]
     Indication: URETHROTOMY
     Route: 042
     Dates: start: 20090422
  2. ULTIVA [Concomitant]
     Route: 042
     Dates: start: 20090422

REACTIONS (5)
  - ANAPHYLACTIC SHOCK [None]
  - BRONCHOSPASM [None]
  - CIRCULATORY COLLAPSE [None]
  - HYPOTENSION [None]
  - SKIN REACTION [None]
